FAERS Safety Report 14391958 (Version 1)
Quarter: 2018Q1

REPORT INFORMATION
  Report Type: Report from Study
  Country: CA (occurrence: CA)
  Receive Date: 20180116
  Receipt Date: 20180116
  Transmission Date: 20180509
  Serious: Yes (Hospitalization)
  Sender: FDA-Public Use
  Company Number: CA-JNJFOC-20180112943

PATIENT
  Age: 54 Year
  Sex: Female
  Weight: 52.7 kg

DRUGS (1)
  1. REMICADE [Suspect]
     Active Substance: INFLIXIMAB
     Indication: CROHN^S DISEASE
     Dosage: STRENGTH = 100 MG
     Route: 042
     Dates: start: 20161230

REACTIONS (2)
  - Intestinal resection [Unknown]
  - Procedural pain [Unknown]

NARRATIVE: CASE EVENT DATE: 20171208
